FAERS Safety Report 25692703 (Version 1)
Quarter: 2025Q3

REPORT INFORMATION
  Report Type: Spontaneous
  Country: US (occurrence: US)
  Receive Date: 20250818
  Receipt Date: 20250818
  Transmission Date: 20251021
  Serious: Yes (Hospitalization)
  Sender: PURDUE
  Company Number: US-MLMSERVICE-20250804-PI602711-00252-1

PATIENT
  Age: 56 Year
  Sex: Male

DRUGS (1)
  1. OXYCODONE HYDROCHLORIDE [Suspect]
     Active Substance: OXYCODONE HYDROCHLORIDE
     Indication: Musculoskeletal chest pain
     Route: 065

REACTIONS (4)
  - Pneumonia lipoid [Unknown]
  - Pneumonia aspiration [Unknown]
  - Aspiration [Unknown]
  - Atelectasis [Unknown]
